FAERS Safety Report 25652068 (Version 2)
Quarter: 2025Q3

REPORT INFORMATION
  Report Type: Spontaneous
  Country: US (occurrence: US)
  Receive Date: 20250806
  Receipt Date: 20250903
  Transmission Date: 20251020
  Serious: No
  Sender: SANOFI AVENTIS
  Company Number: US-SA-2025SA227490

PATIENT
  Sex: Female

DRUGS (2)
  1. KEVZARA [Suspect]
     Active Substance: SARILUMAB
     Indication: Type 2 diabetes mellitus
     Dosage: 200 MG, QOW
     Route: 058
     Dates: start: 202412
  2. KEVZARA [Suspect]
     Active Substance: SARILUMAB
     Indication: Hyperglycaemia

REACTIONS (1)
  - Product use in unapproved indication [Unknown]

NARRATIVE: CASE EVENT DATE: 20241201
